FAERS Safety Report 7198312 (Version 5)
Quarter: 2013Q4

REPORT INFORMATION
  Report Type: Spontaneous
  Country: FR (occurrence: FR)
  Receive Date: 20091203
  Receipt Date: 20131115
  Transmission Date: 20140711
  Serious: Yes (Hospitalization, Disabling, Other)
  Sender: FDA-Public Use
  Company Number: FR-PFIZER INC-2009303282

PATIENT
  Age: 42 Year
  Sex: Male

DRUGS (10)
  1. TAHOR [Suspect]
     Indication: DYSLIPIDAEMIA
     Dosage: UNK
     Route: 048
     Dates: start: 20070318, end: 20081024
  2. TRIATEC [Suspect]
     Dosage: 10 MG, UNK
     Route: 048
     Dates: start: 20070318, end: 20081024
  3. KARDEGIC [Concomitant]
     Dosage: UNK
     Dates: start: 20070318
  4. CARDENSIEL [Concomitant]
     Dosage: UNK
     Dates: start: 1985
  5. APROVEL [Concomitant]
     Dosage: UNK
  6. PLAVIX [Concomitant]
     Dosage: UNK
     Dates: start: 20070318, end: 20081024
  7. BISOPROLOL [Concomitant]
     Dosage: UNK
  8. SOMATULINE LP [Concomitant]
     Dosage: UNK
  9. DETENSIEL [Concomitant]
     Dosage: UNK
     Dates: start: 1985
  10. CREON [Concomitant]
     Dosage: UNK

REACTIONS (15)
  - Pancreatitis necrotising [Recovered/Resolved with Sequelae]
  - Multi-organ failure [Recovered/Resolved with Sequelae]
  - Toxic shock syndrome [Recovered/Resolved with Sequelae]
  - Shock haemorrhagic [Recovered/Resolved with Sequelae]
  - Bradycardia [Recovered/Resolved with Sequelae]
  - Wound dehiscence [Not Recovered/Not Resolved]
  - Fistula [Recovered/Resolved with Sequelae]
  - Dehydration [Recovered/Resolved with Sequelae]
  - Malnutrition [Recovered/Resolved with Sequelae]
  - Pyelonephritis [Recovered/Resolved with Sequelae]
  - Renal colic [Recovered/Resolved with Sequelae]
  - Hypoglycaemia [Recovered/Resolved]
  - Steatorrhoea [Recovered/Resolved with Sequelae]
  - Subdiaphragmatic abscess [Recovered/Resolved with Sequelae]
  - Pancreatic cyst [Unknown]
